FAERS Safety Report 6467507-7 (Version None)
Quarter: 2009Q4

REPORT INFORMATION
  Report Type: 
  Country: None (occurrence: None)
  Receive Date: 20091202
  Receipt Date: 20091120
  Transmission Date: 20100525
  Serious: Yes (Hospitalization)
  Sender: FDA-Public Use
  Company Number: US-WYE-H11588909

PATIENT
  Sex: Male
  Weight: 120.2 kg

DRUGS (17)
  1. SIROLIMUS [Suspect]
     Indication: IMMUNOSUPPRESSION
     Route: 048
     Dates: start: 20090609, end: 20091025
  2. LIPITOR [Concomitant]
     Indication: HYPERCHOLESTEROLAEMIA
     Dosage: UNKNOWN
     Dates: start: 20091016
  3. ERGOCALCIFEROL [Concomitant]
     Indication: VITAMIN SUPPLEMENTATION
     Route: 048
     Dates: start: 20061013
  4. ROCALTROL [Concomitant]
     Indication: MINERAL SUPPLEMENTATION
     Route: 048
     Dates: start: 20040420
  5. CALCIUM CARBONATE [Concomitant]
     Indication: MINERAL SUPPLEMENTATION
     Route: 048
     Dates: start: 20040413
  6. PEPCID [Concomitant]
     Indication: GASTROOESOPHAGEAL REFLUX DISEASE
     Route: 048
     Dates: start: 20040329
  7. LABETALOL HCL [Concomitant]
     Indication: HYPERTENSION
     Route: 048
     Dates: start: 20050107
  8. PREDNISONE [Concomitant]
     Route: 065
     Dates: start: 20040320
  9. CRESTOR [Concomitant]
     Route: 065
  10. MAGNESIUM OXIDE [Concomitant]
     Indication: MINERAL SUPPLEMENTATION
     Route: 065
     Dates: start: 20040413
  11. MYFORTIC [Concomitant]
     Indication: IMMUNOSUPPRESSION
     Dosage: 360, TID
     Route: 065
     Dates: start: 20040330
  12. HYDROXYZINE [Concomitant]
     Route: 065
  13. ALDACTONE [Concomitant]
     Indication: OEDEMA
     Dosage: UNKNOWN
     Dates: start: 20050311
  14. CYCLOSPORINE [Concomitant]
     Indication: IMMUNOSUPPRESSION
     Dosage: UNKNOWN
     Dates: start: 20091022
  15. BLINDED THERAPY [Suspect]
     Indication: PROTEINURIA
     Route: 048
     Dates: start: 20090518
  16. BLINDED THERAPY [Suspect]
     Dosage: UNKNOWN
     Route: 048
     Dates: end: 20091021
  17. AUGMENTIN [Concomitant]
     Indication: CELLULITIS
     Route: 048
     Dates: start: 20091001

REACTIONS (3)
  - BLOOD CREATININE INCREASED [None]
  - DYSPNOEA [None]
  - GENERALISED OEDEMA [None]
